FAERS Safety Report 19291952 (Version 1)
Quarter: 2021Q2

REPORT INFORMATION
  Report Type: Spontaneous
  Country: US (occurrence: US)
  Receive Date: 20210524
  Receipt Date: 20210524
  Transmission Date: 20210717
  Serious: Yes (Death, Other)
  Sender: FDA-Public Use
  Company Number: US-AMGEN-USASP2021078186

PATIENT
  Age: 67 Year
  Sex: Male

DRUGS (10)
  1. PEGFILGRASTIM [Suspect]
     Active Substance: PEGFILGRASTIM
     Indication: PROPHYLAXIS
     Route: 065
  2. ONCOVIN [Concomitant]
     Active Substance: VINCRISTINE SULFATE
  3. HYDROXYDAUNORUBICIN [Concomitant]
     Active Substance: DOXORUBICIN
  4. RITUXIMAB. [Concomitant]
     Active Substance: RITUXIMAB
  5. METHOTREXATE. [Concomitant]
     Active Substance: METHOTREXATE
  6. PREDNISONE. [Concomitant]
     Active Substance: PREDNISONE
     Dosage: 60 MICROGRAM, QD WITH TAPER OVER I MONTH
  7. ASPIRIN. [Concomitant]
     Active Substance: ASPIRIN
  8. CYCLOPHOSPHAMIDE. [Concomitant]
     Active Substance: CYCLOPHOSPHAMIDE
  9. ETOPOSIDE PHOSPHATE [Concomitant]
     Active Substance: ETOPOSIDE PHOSPHATE
  10. ATORVASTATIN [Concomitant]
     Active Substance: ATORVASTATIN
     Dosage: 80 MICROGRAM, QD

REACTIONS (2)
  - Death [Fatal]
  - Diffuse large B-cell lymphoma recurrent [Unknown]
